FAERS Safety Report 6688731-4 (Version None)
Quarter: 2010Q2

REPORT INFORMATION
  Report Type: 
  Country: None (occurrence: None)
  Receive Date: 20100420
  Receipt Date: 20100414
  Transmission Date: 20101027
  Serious: Yes (Hospitalization)
  Sender: FDA-Public Use
  Company Number: A0855551A

PATIENT
  Sex: Female
  Weight: 74 kg

DRUGS (4)
  1. SERETIDE [Suspect]
     Indication: ASTHMA
     Dosage: 1PUFF TWICE PER DAY
     Route: 055
     Dates: start: 20070101
  2. SINGULAIR [Concomitant]
     Dosage: 1TAB AT NIGHT
     Dates: start: 20070101
  3. CARDIZEM [Concomitant]
     Dosage: 1TAB TWICE PER DAY
     Dates: start: 20000101
  4. ATENOLOL [Concomitant]
     Dosage: 1TAB IN THE MORNING
     Dates: start: 20091001

REACTIONS (3)
  - ASTHMA [None]
  - ASTHMATIC CRISIS [None]
  - FATIGUE [None]
